FAERS Safety Report 15066102 (Version 3)
Quarter: 2018Q3

REPORT INFORMATION
  Report Type: Report from Study
  Country: NL (occurrence: NL)
  Receive Date: 20180626
  Receipt Date: 20180702
  Transmission Date: 20181010
  Serious: Yes (Death)
  Sender: FDA-Public Use
  Company Number: NL-ROCHE-2142795

PATIENT
  Age: 56 Year

DRUGS (8)
  1. TRASTUZUMAB EMTANSINE [Suspect]
     Active Substance: ADO-TRASTUZUMAB EMTANSINE
     Indication: HER-2 POSITIVE BREAST CANCER
     Dosage: LAST DOSE OF DRUG ADMINISTERED BEFORE SAE: 09/FEB/2015
     Route: 042
     Dates: start: 20151112
  2. DEPAKINE [Concomitant]
     Active Substance: VALPROATE SODIUM
     Route: 048
     Dates: start: 20180618
  3. DEPAKINE [Concomitant]
     Active Substance: VALPROATE SODIUM
     Route: 048
     Dates: start: 20160421
  4. TRASTUZUMAB. [Suspect]
     Active Substance: TRASTUZUMAB
     Indication: HER-2 POSITIVE BREAST CANCER
     Dosage: MOST RECENT DOSE PRIOR TO SAE: 22/OCT/2015.
     Route: 042
     Dates: start: 20150209
  5. VINORELBINE [Suspect]
     Active Substance: VINORELBINE\VINORELBINE TARTRATE
     Indication: HER-2 POSITIVE BREAST CANCER
     Route: 065
  6. PERTUZUMAB. [Suspect]
     Active Substance: PERTUZUMAB
     Indication: HER-2 POSITIVE BREAST CANCER
     Dosage: MOST RECENT DOSE PRIOR TO SAE: 22/OCT/2015.
     Route: 042
     Dates: start: 20150209
  7. ALENDRONIC ACID [Concomitant]
     Active Substance: ALENDRONIC ACID
     Route: 065
     Dates: start: 20150115, end: 20180118
  8. PACLITAXEL. [Suspect]
     Active Substance: PACLITAXEL
     Indication: HER-2 POSITIVE BREAST CANCER
     Route: 065

REACTIONS (1)
  - Seizure [Fatal]

NARRATIVE: CASE EVENT DATE: 20180618
